FAERS Safety Report 4501644-9 (Version None)
Quarter: 2004Q4

REPORT INFORMATION
  Report Type: 
  Country: None (occurrence: None)
  Receive Date: 20041115
  Receipt Date: 20041115
  Transmission Date: 20050328
  Serious: Yes (Disabling)
  Sender: FDA-Public Use
  Company Number: None

PATIENT
  Age: 89 Year
  Sex: Female
  Weight: 93.441 kg

DRUGS (2)
  1. CARDIZEM LA [Suspect]
     Indication: HYPERTENSION
     Dosage: ONE DAILY
  2. HYDROCHLOROTHIAZIDE [Concomitant]

REACTIONS (1)
  - DERMATITIS EXFOLIATIVE [None]
